FAERS Safety Report 24539019 (Version 1)
Quarter: 2024Q4

REPORT INFORMATION
  Report Type: Spontaneous
  Country: VN (occurrence: VN)
  Receive Date: 20241023
  Receipt Date: 20241023
  Transmission Date: 20250115
  Serious: Yes (Hospitalization)
  Sender: STRIDES
  Company Number: VN-STRIDES ARCOLAB LIMITED-2024SP013607

PATIENT
  Age: 42 Year
  Sex: Male

DRUGS (1)
  1. TENOFOVIR DISOPROXIL FUMARATE [Suspect]
     Active Substance: TENOFOVIR DISOPROXIL FUMARATE
     Indication: Chronic hepatitis B
     Dosage: UNK
     Route: 065

REACTIONS (5)
  - Hypophosphataemic osteomalacia [Recovered/Resolved]
  - Renal tubular acidosis [Unknown]
  - Electrolyte imbalance [Unknown]
  - Myopathy [Recovered/Resolved]
  - Osteomalacia [Recovered/Resolved]
